FAERS Safety Report 12235496 (Version 1)
Quarter: 2016Q2

REPORT INFORMATION
  Report Type: Spontaneous
  Country: CH (occurrence: CH)
  Receive Date: 20160404
  Receipt Date: 20160404
  Transmission Date: 20160815
  Serious: Yes (Other)
  Sender: FDA-Public Use
  Company Number: PHHY2016CH044019

PATIENT
  Sex: Male
  Weight: 100 kg

DRUGS (2)
  1. MIACALCIC [Suspect]
     Active Substance: CALCITONIN SALMON
     Indication: STRESS FRACTURE
     Dosage: UNK
     Route: 065
  2. MIACALCIC [Suspect]
     Active Substance: CALCITONIN SALMON
     Dosage: 100 IU, QD
     Route: 045
     Dates: start: 20160324

REACTIONS (2)
  - Epistaxis [Unknown]
  - Product use issue [Unknown]
